FAERS Safety Report 16353964 (Version 2)
Quarter: 2019Q2

REPORT INFORMATION
  Report Type: Spontaneous
  Country: US (occurrence: US)
  Receive Date: 20190524
  Receipt Date: 20190612
  Transmission Date: 20190711
  Serious: Yes (Other)
  Sender: FDA-Public Use
  Company Number: US-REGENERON PHARMACEUTICALS, INC.-2019-32609

PATIENT

DRUGS (3)
  1. EYLEA [Suspect]
     Active Substance: AFLIBERCEPT
     Indication: MACULAR OEDEMA
  2. EYLEA [Suspect]
     Active Substance: AFLIBERCEPT
     Indication: CONJUNCTIVAL HAEMORRHAGE
     Dosage: IN THE LEFT EYE, ONCE A MONTH
     Route: 031
     Dates: start: 20190506
  3. PROBIOTICS NOS [Concomitant]
     Active Substance: PROBIOTICS NOS
     Indication: PRODUCT USED FOR UNKNOWN INDICATION
     Dosage: UNK

REACTIONS (8)
  - Peripheral swelling [Recovered/Resolved]
  - Thrombosis [Unknown]
  - Limb discomfort [Recovered/Resolved]
  - Rash [Unknown]
  - Gait disturbance [Unknown]
  - Off label use [Unknown]
  - Pain in extremity [Recovered/Resolved]
  - Migraine [Recovered/Resolved]

NARRATIVE: CASE EVENT DATE: 20190506
